FAERS Safety Report 14258325 (Version 1)
Quarter: 2017Q4

REPORT INFORMATION
  Report Type: Spontaneous
  Country: US (occurrence: US)
  Receive Date: 20171207
  Receipt Date: 20171207
  Transmission Date: 20180321
  Serious: Yes (Other)
  Sender: FDA-Public Use
  Company Number: US-009507513-1711USA011902

PATIENT
  Sex: Female

DRUGS (1)
  1. FOLLISTIM [Suspect]
     Active Substance: FOLLITROPIN
     Indication: OVULATION INDUCTION
     Dosage: UNK
     Dates: start: 201704

REACTIONS (2)
  - Abortion spontaneous [Unknown]
  - Maternal exposure during delivery [Recovered/Resolved]

NARRATIVE: CASE EVENT DATE: 20170924
